FAERS Safety Report 8508764-2 (Version None)
Quarter: 2012Q3

REPORT INFORMATION
  Report Type: 
  Country: None (occurrence: None)
  Receive Date: 20120713
  Receipt Date: 20120703
  Transmission Date: 20120928
  Serious: Yes (Life-Threatening, Hospitalization, Other)
  Sender: FDA-Public Use
  Company Number: RS-NOVOPROD-289312

PATIENT
  Age: 8 Year
  Sex: Female
  Weight: 26 kg

DRUGS (3)
  1. NORDITROPIN [Suspect]
     Indication: HYPOPITUITARISM
     Dosage: 0.83 MG, QD
     Route: 058
     Dates: start: 20080310, end: 20090625
  2. TIROXIN                            /00068002/ [Concomitant]
     Dosage: 50 MCG, QD (NA L TIROXINE)
     Dates: start: 20091124
  3. NORDITROPIN [Suspect]
     Dosage: 0.66 MG, QD
     Route: 058
     Dates: start: 20110203

REACTIONS (2)
  - METASTASES TO SPINE [None]
  - HEADACHE [None]
